FAERS Safety Report 8836218 (Version 6)
Quarter: 2014Q1

REPORT INFORMATION
  Report Type: Spontaneous
  Country: US (occurrence: US)
  Receive Date: 20121011
  Receipt Date: 20140130
  Transmission Date: 20141002
  Serious: Yes (Hospitalization, Other)
  Sender: FDA-Public Use
  Company Number: US-PFIZER INC-2012251183

PATIENT
  Age: 51 Year
  Sex: Male
  Weight: 109 kg

DRUGS (15)
  1. LYRICA [Suspect]
     Indication: NEUROPATHY PERIPHERAL
     Dosage: 150 MG, DAILY
     Route: 048
  2. LYRICA [Suspect]
     Indication: PAIN
     Dosage: 300 MG, DAILY
     Route: 048
  3. LYRICA [Suspect]
     Dosage: 450 MG, DAILY
     Route: 048
  4. LYRICA [Suspect]
     Dosage: 950 MG, DAILY
     Route: 048
  5. LYRICA [Suspect]
     Dosage: 960 MG, DAILY
     Route: 048
  6. LYRICA [Suspect]
     Dosage: 950 MG, DAILY
     Route: 048
  7. LYRICA [Suspect]
     Dosage: 200MG IN THE MORNING, 50MG IN THE AFTERNOON AND 200MG AT NIGHT
     Route: 048
     Dates: start: 2009
  8. ZOLOFT [Suspect]
     Dosage: 100 MG, DAILY
  9. VIAGRA [Suspect]
     Dosage: UNK
  10. NEURONTIN [Suspect]
     Indication: NEUROPATHY PERIPHERAL
     Dosage: UNK
  11. LAMOTRIGINE [Concomitant]
     Dosage: UNK
  12. BUPROPION [Concomitant]
     Indication: ANXIETY
     Dosage: 150 MG, 2X/DAY
  13. FENOFIBRATE [Concomitant]
     Dosage: 200 MG, DAILY
  14. POTASSIUM [Concomitant]
     Dosage: UNK
  15. FISH OIL [Concomitant]
     Dosage: UNK

REACTIONS (9)
  - Arthropathy [Unknown]
  - Staphylococcal infection [Unknown]
  - Arthropathy [Unknown]
  - Neuropathy peripheral [Unknown]
  - Local swelling [Not Recovered/Not Resolved]
  - Weight increased [Unknown]
  - Lethargy [Unknown]
  - Drug effect incomplete [Unknown]
  - Amnesia [Unknown]
